FAERS Safety Report 17053329 (Version 1)
Quarter: 2019Q4

REPORT INFORMATION
  Report Type: Spontaneous
  Country: GB (occurrence: GB)
  Receive Date: 20191120
  Receipt Date: 20191120
  Transmission Date: 20200122
  Serious: Yes (Other)
  Sender: FDA-Public Use
  Company Number: GB-TAKEDA-2019TUS066261

PATIENT
  Age: 39 Year
  Sex: Female
  Weight: 58.7 kg

DRUGS (4)
  1. TURMERIC                           /01079602/ [Concomitant]
     Active Substance: HERBALS\TURMERIC
     Dosage: UNK
  2. ULMUS RUBRA [Concomitant]
     Dosage: UNK
  3. ENTYVIO [Suspect]
     Active Substance: VEDOLIZUMAB
     Indication: INFLAMMATORY BOWEL DISEASE
     Dosage: 300 MILLIGRAM
     Route: 042
     Dates: start: 20190312, end: 20191004
  4. SPATONE [Concomitant]
     Dosage: UNK

REACTIONS (5)
  - Autoimmune haemolytic anaemia [Recovering/Resolving]
  - Frequent bowel movements [Unknown]
  - Fatigue [Unknown]
  - Dyspnoea [Unknown]
  - Dizziness [Unknown]

NARRATIVE: CASE EVENT DATE: 20191001
